FAERS Safety Report 4874722-2 (Version None)
Quarter: 2006Q1

REPORT INFORMATION
  Report Type: 
  Country: None (occurrence: None)
  Receive Date: 20060106
  Receipt Date: 20050803
  Transmission Date: 20060701
  Serious: Yes (Hospitalization)
  Sender: FDA-Public Use
  Company Number: FR-MERCK-0508FRA00006

PATIENT
  Age: 73 Year
  Sex: Male
  Weight: 89 kg

DRUGS (13)
  1. ZOCOR [Suspect]
     Indication: ISCHAEMIC CARDIOMYOPATHY
     Route: 048
     Dates: end: 20050703
  2. ZOCOR [Suspect]
     Route: 048
     Dates: start: 20050801, end: 20050801
  3. ACEBUTOLOL [Suspect]
     Indication: ISCHAEMIC CARDIOMYOPATHY
     Route: 048
     Dates: end: 20050703
  4. ACEBUTOLOL [Suspect]
     Route: 048
     Dates: start: 20050801, end: 20050801
  5. DILTIAZEM HYDROCHLORIDE [Suspect]
     Indication: ISCHAEMIC CARDIOMYOPATHY
     Route: 048
     Dates: end: 20050626
  6. DILTIAZEM HYDROCHLORIDE [Suspect]
     Route: 048
     Dates: start: 20050701
  7. ALLOPURINOL [Suspect]
     Route: 048
     Dates: end: 20050703
  8. METFORMIN [Suspect]
     Indication: DIABETES MELLITUS
     Route: 048
     Dates: end: 20050628
  9. RAMIPRIL [Suspect]
     Indication: ISCHAEMIC CARDIOMYOPATHY
     Route: 048
     Dates: end: 20050701
  10. CLOPIDOGREL BISULFATE [Suspect]
     Indication: CORONARY ARTERY DISEASE
     Route: 048
     Dates: end: 20050703
  11. ACEPROMAZINE AND ACEPROMETAZINE AND CLORAZEPATE DIPOTASSIUM [Suspect]
     Route: 048
     Dates: end: 20050703
  12. ACETAMINOPHEN [Suspect]
     Route: 048
     Dates: end: 20050703
  13. PENTOXIFYLLINE [Suspect]
     Route: 065
     Dates: end: 20050703

REACTIONS (7)
  - ASTHENIA [None]
  - DYSPNOEA [None]
  - HAEMOGLOBIN DECREASED [None]
  - MEAN CELL VOLUME DECREASED [None]
  - OXYGEN SATURATION DECREASED [None]
  - PULMONARY FIBROSIS [None]
  - SEPSIS [None]
